FAERS Safety Report 9762250 (Version 1)
Quarter: 2013Q4

REPORT INFORMATION
  Report Type: Spontaneous
  Country: US (occurrence: US)
  Receive Date: 20131216
  Receipt Date: 20131216
  Transmission Date: 20140711
  Serious: No
  Sender: FDA-Public Use
  Company Number: US-BIOGENIDEC-2013BI105463

PATIENT
  Sex: Female

DRUGS (7)
  1. TECFIDERA [Suspect]
     Indication: MULTIPLE SCLEROSIS
     Route: 048
     Dates: start: 20131014
  2. ATIVAN [Concomitant]
  3. EFFEXOR [Concomitant]
  4. METFORMIN [Concomitant]
  5. TRAZODONE [Concomitant]
  6. TRIAMTERENE [Concomitant]
  7. VITAMIN D [Concomitant]

REACTIONS (1)
  - Flushing [Unknown]
